FAERS Safety Report 5566914-4 (Version None)
Quarter: 2007Q4

REPORT INFORMATION
  Report Type: 
  Country: None (occurrence: None)
  Receive Date: 20071219
  Receipt Date: 20070126
  Transmission Date: 20080405
  Serious: No
  Sender: FDA-Public Use
  Company Number: US-BRISTOL-MYERS SQUIBB COMPANY-13658869

PATIENT
  Sex: Female

DRUGS (1)
  1. PRAVACHOL [Suspect]
     Indication: BLOOD CHOLESTEROL INCREASED

REACTIONS (3)
  - BACK PAIN [None]
  - MUSCULOSKELETAL PAIN [None]
  - NECK PAIN [None]
